FAERS Safety Report 25227892 (Version 3)
Quarter: 2025Q3

REPORT INFORMATION
  Report Type: Spontaneous
  Country: EU (occurrence: EU)
  Receive Date: 20250423
  Receipt Date: 20250730
  Transmission Date: 20251021
  Serious: Yes (Other)
  Sender: CELLTRION
  Company Number: EU-CELLTRION INC.-2025CZ011060

PATIENT

DRUGS (2)
  1. INFLIXIMAB [Suspect]
     Active Substance: INFLIXIMAB
     Indication: Psoriatic arthropathy
     Route: 042
     Dates: start: 201603, end: 202301
  2. INFLIXIMAB [Suspect]
     Active Substance: INFLIXIMAB
     Dates: start: 202304, end: 202312

REACTIONS (6)
  - Psoriatic arthropathy [Recovered/Resolved]
  - Intentional product use issue [Unknown]
  - Intentional dose omission [Unknown]
  - Therapy partial responder [Unknown]
  - Therapeutic product effect incomplete [Unknown]
  - Off label use [Unknown]

NARRATIVE: CASE EVENT DATE: 20160301
